FAERS Safety Report 20641715 (Version 1)
Quarter: 2022Q1

REPORT INFORMATION
  Report Type: Spontaneous
  Country: US (occurrence: US)
  Receive Date: 20220328
  Receipt Date: 20220328
  Transmission Date: 20220423
  Serious: No
  Sender: FDA-Public Use
  Company Number: US-UROGEN PHARMA LTD.-2022-UGN-000010

PATIENT

DRUGS (4)
  1. JELMYTO [Suspect]
     Active Substance: MITOMYCIN
     Indication: Transitional cell cancer of the renal pelvis and ureter
     Dosage: 1 MG MILLIGRAM (S) (INSTILLATION)
     Dates: start: 20220107, end: 20220107
  2. JELMYTO [Suspect]
     Active Substance: MITOMYCIN
     Dosage: 1 MG MILLIGRAM (S) (INSTILLATION)
     Dates: start: 20220114, end: 20220114
  3. JELMYTO [Suspect]
     Active Substance: MITOMYCIN
     Dosage: 1 MG MILLIGRAM (S) (INSTILLATION)
     Dates: start: 20220121, end: 20220121
  4. JELMYTO [Suspect]
     Active Substance: MITOMYCIN
     Dosage: 1 MG MILLIGRAM (S) (INSTILLATION)
     Dates: start: 20220128, end: 20220128

REACTIONS (2)
  - Nocturia [Unknown]
  - Fatigue [Unknown]

NARRATIVE: CASE EVENT DATE: 20220101
